FAERS Safety Report 12321563 (Version 1)
Quarter: 2016Q2

REPORT INFORMATION
  Report Type: Spontaneous
  Country: BR (occurrence: BR)
  Receive Date: 20160502
  Receipt Date: 20160502
  Transmission Date: 20160815
  Serious: Yes (Other)
  Sender: FDA-Public Use
  Company Number: BR-BAYER-2016-079193

PATIENT
  Age: 37 Year
  Sex: Female

DRUGS (3)
  1. LEVOTHYROXINE SODIUM. [Concomitant]
     Active Substance: LEVOTHYROXINE SODIUM
     Indication: HYPOTHYROIDISM
     Dosage: 88 MCG/24HR, QD
     Route: 048
     Dates: start: 201504
  2. AVALOX [Suspect]
     Active Substance: MOXIFLOXACIN HYDROCHLORIDE
     Indication: SINUSITIS
     Dosage: 1 DF, QD
     Route: 048
     Dates: start: 20160419
  3. AVALOX [Suspect]
     Active Substance: MOXIFLOXACIN HYDROCHLORIDE
     Indication: DECREASED BRONCHIAL SECRETION

REACTIONS (15)
  - Anorectal discomfort [Not Recovered/Not Resolved]
  - Nausea [Recovered/Resolved]
  - Pyrexia [Not Recovered/Not Resolved]
  - Tongue discolouration [Not Recovered/Not Resolved]
  - Throat irritation [Not Recovered/Not Resolved]
  - Vertigo [Recovered/Resolved]
  - Glossodynia [Not Recovered/Not Resolved]
  - Dizziness [Recovered/Resolved]
  - Cystitis [Not Recovered/Not Resolved]
  - Pharyngeal erythema [Not Recovered/Not Resolved]
  - Vulvovaginal burning sensation [Not Recovered/Not Resolved]
  - Throat tightness [Not Recovered/Not Resolved]
  - Dry mouth [None]
  - Atrophic glossitis [Not Recovered/Not Resolved]
  - Swollen tongue [Not Recovered/Not Resolved]

NARRATIVE: CASE EVENT DATE: 20160419
